FAERS Safety Report 17545013 (Version 1)
Quarter: 2020Q1

REPORT INFORMATION
  Report Type: Spontaneous
  Country: US (occurrence: US)
  Receive Date: 20200313
  Receipt Date: 20200313
  Transmission Date: 20200409
  Serious: Yes (Other)
  Sender: FDA-Public Use
  Company Number: None

PATIENT
  Age: 43 Year
  Sex: Female
  Weight: 70.2 kg

DRUGS (5)
  1. REMARON TABS 15MG [Concomitant]
  2. DIVALPROEX SOD ER TABS 500MG 1/2X [Concomitant]
  3. LITHIUM CARBONATE ER 300MG [Suspect]
     Active Substance: LITHIUM CARBONATE
     Indication: BIPOLAR DISORDER
     Dosage: ?          QUANTITY:60 TABLET(S);?
     Route: 048
     Dates: start: 20200109, end: 20200122
  4. WELLBUTRIN SR TABS 1/2X 200MG [Concomitant]
  5. DEXTROAMPHET SACCHARAT, AMPHET ASPARTATE, DEXTROAMPHET SULFATE AND AMPHET SULFAT [Concomitant]
     Active Substance: AMPHETAMINE ASPARTATE\AMPHETAMINE SULFATE\DEXTROAMPHETAMINE SACCHARATE\DEXTROAMPHETAMINE SULFATE

REACTIONS (2)
  - Nausea [None]
  - Amnesia [None]

NARRATIVE: CASE EVENT DATE: 20200122
